FAERS Safety Report 4727243-1 (Version None)
Quarter: 2005Q3

REPORT INFORMATION
  Report Type: 
  Country: None (occurrence: None)
  Receive Date: 20050728
  Receipt Date: 20050719
  Transmission Date: 20060218
  Serious: Yes (Hospitalization)
  Sender: FDA-Public Use
  Company Number: US-ABBOTT-05P-163-0306166-00

PATIENT
  Age: 19 Year
  Sex: Female
  Weight: 62.652 kg

DRUGS (10)
  1. DILAUDID [Suspect]
     Indication: PREMEDICATION
     Dates: start: 20050707, end: 20050707
  2. LORAZEPAM [Interacting]
     Indication: PREMEDICATION
     Route: 048
     Dates: start: 20050706, end: 20050706
  3. LIDOCAINE [Interacting]
     Indication: PREMEDICATION
     Dates: start: 20050707, end: 20050707
  4. FENTANYL [Interacting]
     Indication: PREMEDICATION
     Route: 042
     Dates: start: 20050707, end: 20050707
  5. MIDAZOLAM HYDROCHLORIDE [Interacting]
     Indication: PREMEDICATION
     Route: 042
     Dates: start: 20050707, end: 20050707
  6. BUPIVACAINE [Interacting]
     Indication: PREMEDICATION
     Dates: start: 20050707, end: 20050707
  7. PROPOFOL [Interacting]
     Indication: INDUCTION OF ANAESTHESIA
     Route: 042
     Dates: start: 20050707, end: 20050707
  8. SUXAMETHONIUM CHLORIDE [Interacting]
     Indication: INDUCTION OF ANAESTHESIA
     Route: 042
     Dates: start: 20050707, end: 20050707
  9. ISOFLURANE [Interacting]
     Indication: INDUCTION OF ANAESTHESIA
     Dates: start: 20050707, end: 20050707
  10. OXYGEN [Concomitant]
     Indication: INDUCTION OF ANAESTHESIA

REACTIONS (4)
  - COORDINATION ABNORMAL [None]
  - DELAYED RECOVERY FROM ANAESTHESIA [None]
  - DRUG INTERACTION [None]
  - MUSCLE TWITCHING [None]
